FAERS Safety Report 11832023 (Version 1)
Quarter: 2015Q4

REPORT INFORMATION
  Report Type: Spontaneous
  Country: GB (occurrence: GB)
  Receive Date: 20151214
  Receipt Date: 20151214
  Transmission Date: 20160305
  Serious: Yes (Other)
  Sender: FDA-Public Use
  Company Number: PHHY2015GB158751

PATIENT
  Age: 38 Year
  Sex: Female
  Weight: 51.71 kg

DRUGS (1)
  1. CO-AMOXICLAV [Suspect]
     Active Substance: AMOXICILLIN\CLAVULANIC ACID
     Indication: INFECTION
     Route: 048

REACTIONS (3)
  - Agitation [Recovered/Resolved]
  - Abnormal dreams [Recovered/Resolved]
  - Hallucination, visual [Recovered/Resolved]
